FAERS Safety Report 8834318 (Version 2)
Quarter: 2014Q1

REPORT INFORMATION
  Report Type: Spontaneous
  Country: FR (occurrence: FR)
  Receive Date: 20121010
  Receipt Date: 20140212
  Transmission Date: 20141002
  Serious: Yes (Hospitalization)
  Sender: FDA-Public Use
  Company Number: FR-BAXTER-2012BAX018881

PATIENT
  Age: 71 Year
  Sex: Male
  Weight: 85 kg

DRUGS (10)
  1. HOLOXAN 1000 MG, POUDRE POUR SOLUTION INJECTABLE [Suspect]
     Indication: NEUROFIBROSARCOMA RECURRENT
     Route: 042
     Dates: start: 20120824
  2. HOLOXAN 1000 MG, POUDRE POUR SOLUTION INJECTABLE [Suspect]
     Route: 042
     Dates: start: 20120912, end: 20120914
  3. AMIKACINE MYLAN [Suspect]
     Indication: SEPSIS
     Dosage: 20 MG/KG/DAY
     Route: 042
     Dates: start: 20120917, end: 20120917
  4. UROMITEXAN [Concomitant]
     Indication: PRODUCT USED FOR UNKNOWN INDICATION
     Route: 065
     Dates: start: 20120824
  5. UROMITEXAN [Concomitant]
     Route: 065
     Dates: start: 20120912, end: 20120914
  6. YONDELIS [Concomitant]
     Indication: CHEMOTHERAPY
     Route: 065
  7. DETICENE [Concomitant]
     Indication: CHEMOTHERAPY
     Route: 065
  8. GEMZAR [Concomitant]
     Indication: CHEMOTHERAPY
     Route: 065
  9. INNOHEP [Concomitant]
     Indication: PRODUCT USED FOR UNKNOWN INDICATION
     Route: 065
  10. GRANULOCYTE COLONY-STIMULATING FACTOR NOS [Concomitant]
     Indication: PRODUCT USED FOR UNKNOWN INDICATION
     Route: 065

REACTIONS (2)
  - Renal failure acute [Recovered/Resolved with Sequelae]
  - Septic shock [Unknown]
